FAERS Safety Report 5636708-X (Version None)
Quarter: 2008Q1

REPORT INFORMATION
  Report Type: 
  Country: None (occurrence: None)
  Receive Date: 20080225
  Receipt Date: 20080218
  Transmission Date: 20080703
  Serious: Yes (Other)
  Sender: FDA-Public Use
  Company Number: US-ASTRAZENECA-2008UW01904

PATIENT
  Age: 47 Year
  Sex: Male
  Weight: 90.7 kg

DRUGS (6)
  1. PULMICORT RESPULES [Suspect]
     Indication: CHRONIC SINUSITIS
     Dosage: .5 MG/2 ML BID
     Route: 055
     Dates: start: 20071220
  2. PULMICORT RESPULES [Suspect]
     Indication: NASAL POLYPS
     Dosage: .5 MG/2 ML BID
     Route: 055
     Dates: start: 20071220
  3. PREDNISONE TAB [Concomitant]
     Route: 048
  4. PREDNISONE TAB [Concomitant]
     Route: 048
  5. ALBUTEROL [Concomitant]
  6. OXYCODONE HCL [Concomitant]

REACTIONS (4)
  - CHRONIC SINUSITIS [None]
  - INTENTIONAL DRUG MISUSE [None]
  - POLYP [None]
  - THERAPEUTIC RESPONSE UNEXPECTED [None]
